FAERS Safety Report 23365370 (Version 1)
Quarter: 2024Q1

REPORT INFORMATION
  Report Type: Other
  Country: None (occurrence: US)
  Receive Date: 20240104
  Receipt Date: 20240104
  Transmission Date: 20240410
  Serious: Yes (Other)
  Sender: FDA-Public Use
  Company Number: US-Nuvo Pharmaceuticals Inc-2150155

PATIENT
  Age: 64 Year
  Sex: Male

DRUGS (3)
  1. POLYETHYLENE GLYCOL 3350 [Suspect]
     Active Substance: POLYETHYLENE GLYCOL 3350
     Indication: Constipation
     Route: 048
  2. SENNA [Concomitant]
     Active Substance: SENNA LEAF\SENNOSIDES\SENNOSIDES A AND B
     Route: 065
  3. Shark-liver oil/coco butter [Concomitant]
     Route: 065

REACTIONS (1)
  - Pneumonia lipoid [Unknown]
